FAERS Safety Report 6964732-3 (Version None)
Quarter: 2010Q3

REPORT INFORMATION
  Report Type: 
  Country: None (occurrence: None)
  Receive Date: 20100903
  Receipt Date: 20100824
  Transmission Date: 20110219
  Serious: Yes (Hospitalization)
  Sender: FDA-Public Use
  Company Number: JP-JNJFOC-20100808492

PATIENT
  Age: 67 Year
  Sex: Female

DRUGS (7)
  1. REMICADE [Suspect]
     Indication: RHEUMATOID ARTHRITIS
     Route: 042
  2. REMICADE [Suspect]
     Route: 042
  3. REMICADE [Suspect]
     Dosage: INFUSION 2-4 ON UNSPECIFIED DATES IN 2010
     Route: 042
  4. METHOTREXATE [Suspect]
     Indication: RHEUMATOID ARTHRITIS
     Route: 048
  5. AMARYL [Concomitant]
     Route: 048
  6. OLMESARTAN MEDOXOMIL [Concomitant]
     Route: 048
  7. ACTONEL [Concomitant]
     Route: 048

REACTIONS (2)
  - BRAIN NEOPLASM [None]
  - NASOPHARYNGITIS [None]
